FAERS Safety Report 5507243-4 (Version None)
Quarter: 2007Q4

REPORT INFORMATION
  Report Type: 
  Country: None (occurrence: None)
  Receive Date: 20071105
  Receipt Date: 20071105
  Transmission Date: 20080405
  Serious: Yes (Other)
  Sender: FDA-Public Use
  Company Number: None

PATIENT
  Sex: Male
  Weight: 77.1115 kg

DRUGS (2)
  1. LITHIUM CARBONATE [Suspect]
     Indication: BIPOLAR DISORDER
     Dosage: 300MG TID P.O.
     Route: 048
     Dates: start: 20060220, end: 20060911
  2. LITHIUM CITRATE [Suspect]
     Indication: BIPOLAR DISORDER
     Dosage: 300 MG TID P.O.
     Route: 048

REACTIONS (6)
  - CONFUSIONAL STATE [None]
  - DEPRESSED LEVEL OF CONSCIOUSNESS [None]
  - DRUG TOXICITY [None]
  - POLLAKIURIA [None]
  - THIRST [None]
  - TREMOR [None]
